FAERS Safety Report 16652735 (Version 1)
Quarter: 2019Q3

REPORT INFORMATION
  Report Type: Spontaneous
  Country: US (occurrence: US)
  Receive Date: 20190731
  Receipt Date: 20190731
  Transmission Date: 20191004
  Serious: Yes (Hospitalization)
  Sender: FDA-Public Use
  Company Number: None

PATIENT
  Age: 63 Year
  Sex: Male

DRUGS (8)
  1. VITMAIN D3 CAP 2000 UNIT [Concomitant]
  2. PREDNISONE TAB 20 MG [Concomitant]
  3. MULTIVITAMIN TAB MEN+ [Concomitant]
  4. FERROUS SULF SYP 300/5ML [Concomitant]
  5. ASPIRIN CHW 81 MG [Concomitant]
  6. ATORVASTATIN TAB 10 MG [Concomitant]
  7. HUMIRA [Suspect]
     Active Substance: ADALIMUMAB
     Indication: RHEUMATOID ARTHRITIS
     Dosage: ?          OTHER FREQUENCY:EVERY WEEK;?
     Route: 058
     Dates: start: 20170504
  8. AMLODIPINE TAB 2.5 MG [Concomitant]

REACTIONS (1)
  - Herpes zoster [None]
